FAERS Safety Report 8430176-0 (Version None)
Quarter: 2012Q2

REPORT INFORMATION
  Report Type: 
  Country: None (occurrence: None)
  Receive Date: 20120612
  Receipt Date: 20120607
  Transmission Date: 20120825
  Serious: Yes (Hospitalization)
  Sender: FDA-Public Use
  Company Number: BE-ROCHE-1077301

PATIENT
  Sex: Male
  Weight: 69 kg

DRUGS (2)
  1. AVASTIN [Suspect]
     Indication: METASTATIC RENAL CELL CARCINOMA
     Dosage: LAST DOSE RECEIVED ON 18/SEP/2009
     Dates: start: 20090710, end: 20090918
  2. EVEROLIMUS [Suspect]
     Indication: METASTATIC RENAL CELL CARCINOMA
     Dosage: LAST DOSE RECEIVED ON 17/SEP/2009
     Route: 048
     Dates: start: 20090710, end: 20090918

REACTIONS (3)
  - TOXICITY TO VARIOUS AGENTS [None]
  - CARDIAC FAILURE ACUTE [None]
  - HYPERTENSIVE CRISIS [None]
